FAERS Safety Report 15592350 (Version 2)
Quarter: 2018Q4

REPORT INFORMATION
  Report Type: Spontaneous
  Country: BR (occurrence: BR)
  Receive Date: 20181106
  Receipt Date: 20181107
  Transmission Date: 20190205
  Serious: Yes (Other)
  Sender: FDA-Public Use
  Company Number: BR-ALLERGAN-1852115US

PATIENT
  Age: 71 Year
  Sex: Female

DRUGS (2)
  1. INJECTION TO TREAT TENDINITIS IN BOTH KNEES [Concomitant]
     Indication: TENDONITIS
  2. GANFORT [Suspect]
     Active Substance: BIMATOPROST\TIMOLOL
     Indication: GLAUCOMA
     Dosage: UNKNOWN, 2 BOTTLES PER MONTH
     Route: 047
     Dates: start: 2015

REACTIONS (1)
  - Retinal detachment [Recovered/Resolved]

NARRATIVE: CASE EVENT DATE: 20171229
